FAERS Safety Report 5589210-8 (Version None)
Quarter: 2008Q1

REPORT INFORMATION
  Report Type: 
  Country: None (occurrence: None)
  Receive Date: 20080109
  Receipt Date: 20080109
  Transmission Date: 20080703
  Serious: Yes (Death)
  Sender: FDA-Public Use
  Company Number: None

PATIENT
  Age: 51 Year
  Sex: Female
  Weight: 94 kg

DRUGS (18)
  1. IRESSA [Suspect]
     Indication: NON-SMALL CELL LUNG CANCER
     Dosage: 500MG PO QD X 14 DAYS
     Route: 048
  2. IRESSA [Suspect]
     Indication: NON-SMALL CELL LUNG CANCER
     Dosage: 1000MG PO QD X 14 DAYS
     Route: 048
  3. CALCIUM CARBONATE/VIT D [Concomitant]
  4. MEGACE [Concomitant]
  5. CALTRATE [Concomitant]
  6. CLOBETASOL PROPIONATE [Concomitant]
  7. PROPOXYPHENE/ASA/CAFFEINE [Concomitant]
  8. TRIAMTERENE AND HYDROCHLOROTHIAZIDE [Concomitant]
  9. IMODIUM [Concomitant]
  10. LOMOTIL [Concomitant]
  11. MAG GLUCONATE [Concomitant]
  12. VITAMIN CAP [Concomitant]
  13. NEURONTIN [Concomitant]
  14. AMLODIPINE [Concomitant]
  15. OMEGA-3-FATTY ACIDS [Concomitant]
  16. POTASSIUM CHLORIDE [Concomitant]
  17. PREDNISONE TAB [Concomitant]
  18. ZOFRAN [Concomitant]

REACTIONS (6)
  - DEHYDRATION [None]
  - GENERAL PHYSICAL HEALTH DETERIORATION [None]
  - MALIGNANT NEOPLASM PROGRESSION [None]
  - MUSCULAR WEAKNESS [None]
  - NAUSEA [None]
  - ORAL INTAKE REDUCED [None]
